FAERS Safety Report 5865124-0 (Version None)
Quarter: 2008Q3

REPORT INFORMATION
  Report Type: 
  Country: None (occurrence: None)
  Receive Date: 20080829
  Receipt Date: 20080821
  Transmission Date: 20090109
  Serious: Yes (Hospitalization)
  Sender: FDA-Public Use
  Company Number: A0744976A

PATIENT
  Age: 58 Year
  Sex: Male
  Weight: 81.8 kg

DRUGS (10)
  1. AVANDIA [Suspect]
     Dosage: 8MG TWICE PER DAY
     Route: 048
     Dates: start: 20040823, end: 20071201
  2. REGULAR INSULIN [Concomitant]
  3. DIABETA [Concomitant]
  4. SIMVASTATIN [Concomitant]
  5. RANITIDINE [Concomitant]
  6. GABAPENTIN [Concomitant]
  7. CLOPIDOGREL [Concomitant]
  8. OMEPRAZOLE [Concomitant]
  9. SERTRALINE [Concomitant]
  10. LORAZEPAM [Concomitant]

REACTIONS (1)
  - CEREBROVASCULAR ACCIDENT [None]
